FAERS Safety Report 5426913-X (Version None)
Quarter: 2007Q3

REPORT INFORMATION
  Report Type: 
  Country: None (occurrence: None)
  Receive Date: 20070827
  Receipt Date: 20070815
  Transmission Date: 20080115
  Serious: Yes (Hospitalization)
  Sender: FDA-Public Use
  Company Number: GB-PFIZER INC-9404620

PATIENT
  Age: 81 Year
  Sex: Male

DRUGS (9)
  1. SERTRALINE [Suspect]
     Indication: DEPRESSION
     Route: 048
     Dates: start: 19910509, end: 19910528
  2. AMITRIPTYLINE HCL [Concomitant]
     Dates: start: 19890101, end: 19910509
  3. LITHIUM CARBONATE [Concomitant]
  4. FUROSEMIDE [Concomitant]
  5. AMILORIDE HYDROCHLORIDE [Concomitant]
  6. ISOSORBIDE MONONITRATE [Concomitant]
  7. THIORIDAZINE HCL [Concomitant]
  8. SALBUTAMOL [Concomitant]
     Route: 055
  9. IPRATROPIUM BROMIDE [Concomitant]
     Route: 055

REACTIONS (7)
  - ASPARTATE AMINOTRANSFERASE INCREASED [None]
  - BLOOD ALKALINE PHOSPHATASE INCREASED [None]
  - GAMMA-GLUTAMYLTRANSFERASE INCREASED [None]
  - HAEMATEMESIS [None]
  - HAEMOGLOBIN DECREASED [None]
  - LIVER DISORDER [None]
  - WHITE BLOOD CELL COUNT INCREASED [None]
